FAERS Safety Report 15505267 (Version 3)
Quarter: 2019Q1

REPORT INFORMATION
  Report Type: Spontaneous
  Country: US (occurrence: US)
  Receive Date: 20181016
  Receipt Date: 20190109
  Transmission Date: 20190417
  Serious: No
  Sender: FDA-Public Use
  Company Number: US-ASTRAZENECA-2013SE81548

PATIENT
  Age: 61 Year
  Sex: Female
  Weight: 85.3 kg

DRUGS (5)
  1. BYDUREON [Suspect]
     Active Substance: EXENATIDE
     Indication: TYPE 2 DIABETES MELLITUS
     Route: 058
     Dates: start: 2012
  2. LANTUS [Concomitant]
     Active Substance: INSULIN GLARGINE
  3. BYDUREON [Suspect]
     Active Substance: EXENATIDE
     Indication: TYPE 2 DIABETES MELLITUS
     Route: 058
     Dates: start: 201202, end: 2012
  4. BYDUREON BCISE [Suspect]
     Active Substance: EXENATIDE
     Indication: DIABETES MELLITUS
     Route: 058
     Dates: start: 20181007
  5. BYDUREON [Suspect]
     Active Substance: EXENATIDE
     Indication: TYPE 2 DIABETES MELLITUS
     Dosage: BYDUREON KIT
     Route: 065

REACTIONS (8)
  - Injection site haemorrhage [Recovered/Resolved]
  - Injection site erythema [Recovered/Resolved]
  - Underdose [Unknown]
  - Intentional product misuse [Recovered/Resolved]
  - Glycosylated haemoglobin increased [Unknown]
  - Weight decreased [Not Recovered/Not Resolved]
  - Needle issue [Unknown]
  - Device malfunction [Unknown]

NARRATIVE: CASE EVENT DATE: 2012
